FAERS Safety Report 10558845 (Version 2)
Quarter: 2014Q4

REPORT INFORMATION
  Report Type: Spontaneous
  Country: GB (occurrence: GB)
  Receive Date: 20141101
  Receipt Date: 20141112
  Transmission Date: 20150529
  Serious: Yes (Other)
  Sender: FDA-Public Use
  Company Number: GB-ABBVIE-14K-167-1300033-00

PATIENT
  Sex: Male

DRUGS (1)
  1. HUMIRA [Suspect]
     Active Substance: ADALIMUMAB
     Indication: PRODUCT USED FOR UNKNOWN INDICATION
     Route: 065

REACTIONS (12)
  - Chest discomfort [Unknown]
  - Ulcer [Unknown]
  - Dyspnoea [Unknown]
  - Hyperhidrosis [Unknown]
  - Malaise [Unknown]
  - Blood test abnormal [Recovered/Resolved]
  - Pain [Unknown]
  - Headache [Unknown]
  - Animal bite [Unknown]
  - Abdominal pain upper [Unknown]
  - Infection [Unknown]
  - Fatigue [Unknown]

NARRATIVE: CASE EVENT DATE: 2014
